FAERS Safety Report 9521058 (Version 1)
Quarter: 2013Q1

REPORT INFORMATION
  Report Type: Spontaneous
  Country: US (occurrence: None)
  Receive Date: 20130305
  Receipt Date: 20130305
  Transmission Date: 20140127
  Serious: Yes (Hospitalization)
  Sender: FDA-Public Use
  Company Number: 163-21880-12080377

PATIENT
  Age: 62 Year
  Sex: Female
  Weight: 58.97 kg

DRUGS (16)
  1. REVLIMID (LENALIDOMIDE) (CAPSULES) [Suspect]
     Indication: PLASMA CELL MYELOMA
     Dosage: 14 IN 21 D
     Route: 048
     Dates: start: 20120619, end: 20120717
  2. NEURONTIN (GABAPENTIN) [Concomitant]
  3. PROCHLORPERAZINE (PROCHLORPERAZINE) [Concomitant]
  4. ZOFRAN (ONDANSETRON HYDROCHLORIDE) [Concomitant]
  5. FOLIC ACID (FOLIC ACID) [Concomitant]
  6. VITAMIN B12 (CYANOCOBALAMIN) [Concomitant]
  7. DECADRON (DEXAMETHASONE) [Concomitant]
  8. ASA (ACETYLSALICYLIC ACID) [Concomitant]
  9. DIFLUCAN (FLUCONAZOLE) [Concomitant]
  10. ACYCLOVIR (ACICLOVIR) (ACICLOVIR) [Concomitant]
  11. VELCADE (BORTEZOMIB) [Concomitant]
  12. PENTAMIDINE (PENTAMIDINE) [Concomitant]
  13. ZOMETA (ZOLEDRONIC ACID) [Concomitant]
  14. CALCIUM (CALCIUM) [Concomitant]
  15. VITAMIN D (ERGOCALCIFEROL) [Concomitant]
  16. LOVENOX (HEPARIN-FRACTION, SODIUM SALT) [Concomitant]

REACTIONS (6)
  - Chest pain [None]
  - Hypotension [None]
  - Dizziness [None]
  - Drug dose omission [None]
  - Asthenia [None]
  - Malaise [None]
